FAERS Safety Report 6114896-9 (Version None)
Quarter: 2009Q1

REPORT INFORMATION
  Report Type: 
  Country: None (occurrence: None)
  Receive Date: 20090313
  Receipt Date: 20090304
  Transmission Date: 20090719
  Serious: Yes (Hospitalization)
  Sender: FDA-Public Use
  Company Number: PHHY2009FR08171

PATIENT
  Age: 65 Year
  Sex: Female

DRUGS (16)
  1. COMTAN [Suspect]
     Indication: PARKINSON'S DISEASE
     Dosage: 1400 MG, QD
     Route: 048
  2. COMTAN [Suspect]
     Indication: PSYCHOTIC DISORDER
  3. LEPONEX [Suspect]
     Indication: PARKINSON'S DISEASE
     Dosage: UNK
     Route: 048
  4. LEPONEX [Suspect]
     Indication: PSYCHOTIC DISORDER
  5. LYRICA [Suspect]
     Indication: PARKINSON'S DISEASE
     Dosage: 50 MG, TID
     Route: 048
  6. LYRICA [Suspect]
     Indication: PSYCHOTIC DISORDER
  7. SIFROL [Suspect]
     Indication: PARKINSON'S DISEASE
     Dosage: 2.45 MG, QD
  8. SIFROL [Suspect]
     Indication: PSYCHOTIC DISORDER
  9. SINEMET [Suspect]
     Indication: PARKINSON'S DISEASE
     Dosage: 250MG/25MG
     Route: 048
  10. SINEMET [Suspect]
     Indication: PSYCHOTIC DISORDER
     Dosage: 100MG/10MG
     Route: 048
  11. CITALOPRAM HYDROBROMIDE [Suspect]
     Indication: PARKINSON'S DISEASE
     Dosage: UNK
     Route: 048
  12. CITALOPRAM HYDROBROMIDE [Suspect]
     Indication: PSYCHOTIC DISORDER
  13. SERESTA [Suspect]
     Indication: PARKINSON'S DISEASE
     Dosage: UNK
     Route: 048
  14. SERESTA [Suspect]
     Indication: PSYCHOTIC DISORDER
  15. ALPRAZOLAM [Suspect]
     Indication: PARKINSON'S DISEASE
     Dosage: 50 MG, TID
     Route: 048
  16. ALPRAZOLAM [Suspect]
     Indication: PSYCHOTIC DISORDER

REACTIONS (1)
  - PULMONARY EMBOLISM [None]
